FAERS Safety Report 23455132 (Version 1)
Quarter: 2024Q1

REPORT INFORMATION
  Report Type: Report from Study
  Country: US (occurrence: US)
  Receive Date: 20240130
  Receipt Date: 20240130
  Transmission Date: 20240410
  Serious: Yes (Hospitalization)
  Sender: FDA-Public Use
  Company Number: US-BIOGEN-2024BI01247404

PATIENT
  Sex: Male

DRUGS (1)
  1. VUMERITY [Suspect]
     Active Substance: DIROXIMEL FUMARATE
     Indication: Multiple sclerosis
     Route: 050
     Dates: start: 20210224

REACTIONS (2)
  - Cytomegalovirus hepatitis [Unknown]
  - Lymphocyte count decreased [Recovered/Resolved]

NARRATIVE: CASE EVENT DATE: 20220101
